FAERS Safety Report 7782208-0 (Version None)
Quarter: 2011Q3

REPORT INFORMATION
  Report Type: 
  Country: None (occurrence: None)
  Receive Date: 20110927
  Receipt Date: 20110705
  Transmission Date: 20111222
  Serious: Yes (Death, Hospitalization)
  Sender: FDA-Public Use
  Company Number: FR-GLAXOSMITHKLINE-Z0008672A

PATIENT

DRUGS (8)
  1. GLIBENCEMIDE [Concomitant]
  2. FLUORINDIONE [Concomitant]
  3. AMBRISENTAN [Suspect]
     Indication: PULMONARY ARTERIAL HYPERTENSION
     Route: 048
     Dates: start: 20110323
  4. TADALAFIL [Suspect]
     Indication: PULMONARY ARTERIAL HYPERTENSION
     Route: 048
     Dates: start: 20110323
  5. SIMVASTATIN [Concomitant]
  6. METFORMIN HCL [Concomitant]
  7. LISINOPRIL [Concomitant]
  8. SPIRONOLACTONE [Concomitant]

REACTIONS (4)
  - CARDIAC FAILURE [None]
  - SEPSIS [None]
  - ACUTE RESPIRATORY FAILURE [None]
  - SUPRAVENTRICULAR TACHYARRHYTHMIA [None]
